FAERS Safety Report 24979250 (Version 1)
Quarter: 2025Q1

REPORT INFORMATION
  Report Type: Other
  Country: JP (occurrence: JP)
  Receive Date: 20250218
  Receipt Date: 20250218
  Transmission Date: 20250408
  Serious: Yes (Hospitalization, Other)
  Sender: DEXCEL
  Company Number: JP-DEXPHARM-2025-0939

PATIENT
  Age: 64 Year
  Sex: Male

DRUGS (14)
  1. ESOMEPRAZOLE [Suspect]
     Active Substance: ESOMEPRAZOLE
  2. AMLODIPINE [Suspect]
     Active Substance: AMLODIPINE BESYLATE
  3. OLMESARTAN [Suspect]
     Active Substance: OLMESARTAN
  4. ATENOLOL [Suspect]
     Active Substance: ATENOLOL
  5. TADALAFIL [Suspect]
     Active Substance: TADALAFIL
  6. NAFTOPIDIL [Suspect]
     Active Substance: NAFTOPIDIL
  7. MIYA-BM [Suspect]
     Active Substance: CLOSTRIDIUM BUTYRICUM SPORES STRAIN M-55
  8. DIAZEPAM [Concomitant]
     Active Substance: DIAZEPAM
     Route: 050
  9. Magnesium sulfate administration [Concomitant]
     Route: 050
  10. Magnesium sulfate administration [Concomitant]
     Route: 050
  11. Magnesium sulfate administration [Concomitant]
     Route: 050
  12. Magnesium sulfate administration [Concomitant]
     Route: 050
  13. Magnesium sulfate administration [Concomitant]
     Route: 050
  14. Magnesium sulfate administration [Concomitant]
     Route: 050

REACTIONS (4)
  - Hypomagnesaemia [Recovered/Resolved]
  - Hypokalaemia [Recovered/Resolved]
  - Hypocalcaemia [Recovered/Resolved]
  - Urinary tract infection [Recovered/Resolved]
